FAERS Safety Report 4709186-2 (Version None)
Quarter: 2005Q2

REPORT INFORMATION
  Report Type: 
  Country: None (occurrence: None)
  Receive Date: 20050629
  Receipt Date: 20050616
  Transmission Date: 20051028
  Serious: Yes (Hospitalization)
  Sender: FDA-Public Use
  Company Number: THYM-10530

PATIENT
  Age: 53 Year
  Sex: Male
  Weight: 70 kg

DRUGS (8)
  1. THYMOGLOBULIN [Suspect]
     Indication: RENAL TRANSPLANT
     Dosage: 90 MG QD IV
     Route: 042
     Dates: start: 20040309, end: 20040313
  2. RAPAMUNE [Concomitant]
  3. TACROLIMUS [Concomitant]
  4. COUMADIN [Concomitant]
  5. METOPROLOL SUCCINATE [Concomitant]
  6. NORVASC [Concomitant]
  7. LASIX [Concomitant]
  8. LIPITOR [Concomitant]

REACTIONS (6)
  - BRONCHOPNEUMONIA [None]
  - CARDIAC FAILURE CONGESTIVE [None]
  - CATHETER RELATED COMPLICATION [None]
  - DEEP VEIN THROMBOSIS [None]
  - HYPOXIA [None]
  - RESPIRATORY DISTRESS [None]
